FAERS Safety Report 25701803 (Version 3)
Quarter: 2025Q3

REPORT INFORMATION
  Report Type: Spontaneous
  Country: PA (occurrence: PA)
  Receive Date: 20250819
  Receipt Date: 20250908
  Transmission Date: 20251020
  Serious: No
  Sender: SANDOZ
  Company Number: PA-002147023-NVSC2022PA190036

PATIENT
  Sex: Female

DRUGS (5)
  1. ANASTROZOLE [Suspect]
     Active Substance: ANASTROZOLE
     Indication: Product used for unknown indication
     Route: 065
  2. KISQALI [Suspect]
     Active Substance: RIBOCICLIB SUCCINATE
     Indication: Breast cancer metastatic
     Dosage: 600 MG, QD
     Route: 048
     Dates: start: 202203
  3. KISQALI [Suspect]
     Active Substance: RIBOCICLIB SUCCINATE
     Dosage: 600 MG, QD
     Route: 048
     Dates: start: 20220510
  4. KISQALI [Suspect]
     Active Substance: RIBOCICLIB SUCCINATE
     Dosage: 600 MG, QD
     Route: 048
     Dates: start: 2022
  5. KISQALI [Suspect]
     Active Substance: RIBOCICLIB SUCCINATE
     Dosage: 600 MG, QD (ONCE A DAY)
     Route: 048
     Dates: start: 202205

REACTIONS (17)
  - Dermatitis [Recovered/Resolved]
  - Skin reaction [Recovering/Resolving]
  - Therapeutic response unexpected [Unknown]
  - Dry skin [Not Recovered/Not Resolved]
  - Dermatitis allergic [Unknown]
  - Lymphoedema [Unknown]
  - Peripheral swelling [Unknown]
  - Cough [Unknown]
  - Pruritus [Unknown]
  - Psoriasis [Recovering/Resolving]
  - Skin discolouration [Unknown]
  - Vitiligo [Recovering/Resolving]
  - Pigmentation disorder [Recovering/Resolving]
  - Madarosis [Recovering/Resolving]
  - Erythema [Not Recovered/Not Resolved]
  - Alopecia [Recovering/Resolving]
  - Rash [Unknown]

NARRATIVE: CASE EVENT DATE: 20220101
